FAERS Safety Report 6467501-6 (Version None)
Quarter: 2009Q4

REPORT INFORMATION
  Report Type: 
  Country: None (occurrence: None)
  Receive Date: 20091202
  Receipt Date: 20091128
  Transmission Date: 20100525
  Serious: Yes (Life-Threatening, Hospitalization)
  Sender: FDA-Public Use
  Company Number: US-ELI_LILLY_AND_COMPANY-US200911004785

PATIENT
  Sex: Male
  Weight: 86.168 kg

DRUGS (27)
  1. BYETTA [Suspect]
     Indication: TYPE 2 DIABETES MELLITUS
     Dosage: 5 UG, 2/D
     Route: 058
     Dates: start: 20080428, end: 20080501
  2. BYETTA [Suspect]
     Dosage: 10 UG, 2/D
     Route: 058
     Dates: start: 20080501, end: 20091101
  3. BYETTA [Suspect]
     Dosage: 5 UG, 2/D
     Route: 058
     Dates: start: 20091101
  4. BYETTA [Suspect]
     Dosage: 5 UG, 2/D
     Route: 058
     Dates: start: 20091101
  5. GLIPIZIDE [Concomitant]
     Indication: TYPE 2 DIABETES MELLITUS
     Dosage: 5 MG, 2/D
  6. ALLOPURINOL [Concomitant]
     Indication: GOUT
     Dosage: 300 MG, DAILY (1/D)
  7. TOPROL-XL [Concomitant]
     Indication: BLOOD PRESSURE
     Dosage: 50 MG, EACH MORNING
  8. NEXIUM [Concomitant]
     Indication: GASTROOESOPHAGEAL REFLUX DISEASE
     Dosage: 40 MG, DAILY (1/D)
  9. PLAVIX [Concomitant]
     Dosage: 75 MG, DAILY (1/D)
  10. ZETIA [Concomitant]
     Indication: BLOOD CHOLESTEROL
     Dosage: 10 MG, DAILY (1/D)
  11. ULTRACET [Concomitant]
     Indication: PAIN IN EXTREMITY
     Dosage: UNK, AS NEEDED
  12. LIPITOR [Concomitant]
     Indication: BLOOD CHOLESTEROL
     Dosage: 40 MG, DAILY (1/D)
  13. TRICOR [Concomitant]
     Indication: BLOOD CHOLESTEROL
     Dosage: 145 MG, DAILY (1/D)
  14. HECTOROL [Concomitant]
     Indication: SUPPLEMENTATION THERAPY
     Dosage: 0.5 MG, QOD
  15. BABY ASPIRIN [Concomitant]
     Dosage: 81 MG, DAILY (1/D)
  16. MIRAPEX [Concomitant]
     Indication: RESTLESS LEGS SYNDROME
     Dosage: 0.125 MG, DAILY (1/D)
  17. VITAMIN B-12 [Concomitant]
     Indication: SUPPLEMENTATION THERAPY
     Dosage: 1000 MG, DAILY (1/D)
  18. MAGNESIUM [Concomitant]
     Indication: SUPPLEMENTATION THERAPY
  19. VITAMIN A [Concomitant]
     Indication: SUPPLEMENTATION THERAPY
     Dosage: 2000 MG, EACH MORNING
  20. ASCORBIC ACID [Concomitant]
     Indication: SUPPLEMENTATION THERAPY
  21. LOVAZA [Concomitant]
     Indication: SUPPLEMENTATION THERAPY
  22. MULTIVITAMIN [Concomitant]
     Indication: SUPPLEMENTATION THERAPY
     Dosage: UNK, DAILY (1/D)
     Dates: start: 20090101
  23. NEURONTIN [Concomitant]
     Dosage: 600 MG, AS NEEDED
  24. MULTI-VITAMIN [Concomitant]
     Dosage: UNK, DAILY (1/D)
  25. MAGNESIUM OXIDE [Concomitant]
     Dosage: 400 MG, 2/D
  26. VITAMIN A [Concomitant]
     Dosage: UNK, EACH MORNING
  27. MIRTAZAPINE [Concomitant]
     Indication: RESTLESS LEGS SYNDROME
     Dosage: 45 MG, EACH EVENING

REACTIONS (10)
  - BLOOD PRESSURE DECREASED [None]
  - DYSPHAGIA [None]
  - HEADACHE [None]
  - MEDICAL DEVICE COMPLICATION [None]
  - NAUSEA [None]
  - PNEUMONIA [None]
  - PULMONARY MASS [None]
  - SEPSIS [None]
  - VOMITING [None]
  - WEIGHT DECREASED [None]
